FAERS Safety Report 22323534 (Version 1)
Quarter: 2023Q2

REPORT INFORMATION
  Report Type: Report from Study
  Country: IT (occurrence: IT)
  Receive Date: 20230516
  Receipt Date: 20230516
  Transmission Date: 20230721
  Serious: Yes (Other)
  Sender: FDA-Public Use
  Company Number: None

PATIENT
  Age: 47 Year
  Sex: Female

DRUGS (5)
  1. ESOMEPRAZOLE [Suspect]
     Active Substance: ESOMEPRAZOLE
     Indication: Product used for unknown indication
     Dosage: FREQUENCY OF ADMINISTRATION: DAILY, ROUTE OF ADMINISTRATION: IV
     Dates: start: 20220822, end: 20220830
  2. PANTOPRAZOLE SODIUM [Suspect]
     Active Substance: PANTOPRAZOLE SODIUM
     Indication: Product used for unknown indication
     Dosage: FREQUENCY OF ADMINISTRATION:?TOTAL, ROUTE OF ADMINISTRATION: INTRAVENOUS
     Dates: start: 20220828, end: 20220828
  3. PREDNISONE [Concomitant]
     Active Substance: PREDNISONE
     Route: 048
     Dates: start: 20220822, end: 20220903
  4. LEVOTHYROXINE SODIUM [Concomitant]
     Active Substance: LEVOTHYROXINE SODIUM
     Route: 048
     Dates: start: 20220822
  5. SODIUM IODIDE [Concomitant]
     Active Substance: SODIUM IODIDE
     Indication: Radioisotope scan
     Route: 048
     Dates: start: 20220822, end: 20220822

REACTIONS (2)
  - Angioedema [Recovering/Resolving]
  - Rash [Recovering/Resolving]

NARRATIVE: CASE EVENT DATE: 20220828
